FAERS Safety Report 10067780 (Version 1)
Quarter: 2014Q2

REPORT INFORMATION
  Report Type: Spontaneous
  Country: US (occurrence: None)
  Receive Date: 20140407
  Receipt Date: 20140407
  Transmission Date: 20141212
  Serious: Yes (Other)
  Sender: FDA-Public Use
  Company Number: 3004763499-2014-00009

PATIENT
  Age: 29 Year
  Sex: Female

DRUGS (1)
  1. HIBICLENS [Suspect]
     Indication: WOUND TREATMENT
     Route: 061
     Dates: start: 20140316

REACTIONS (5)
  - Pruritus [None]
  - Erythema [None]
  - Pharyngeal oedema [None]
  - Hypotension [None]
  - Swollen tongue [None]
